FAERS Safety Report 12028637 (Version 1)
Quarter: 2016Q1

REPORT INFORMATION
  Report Type: Report from Study
  Country: US (occurrence: US)
  Receive Date: 20160207
  Receipt Date: 20160207
  Transmission Date: 20160526
  Serious: No
  Sender: FDA-Public Use
  Company Number: US-ABBVIE-15K-163-1498346-00

PATIENT
  Age: 57 Year
  Sex: Male
  Weight: 113.5 kg

DRUGS (2)
  1. HUMIRA [Suspect]
     Active Substance: ADALIMUMAB
     Indication: COLITIS ULCERATIVE
     Route: 058
     Dates: start: 201509
  2. TYLENOL [Concomitant]
     Active Substance: ACETAMINOPHEN
     Indication: PRODUCT USED FOR UNKNOWN INDICATION

REACTIONS (4)
  - Bursitis [Unknown]
  - Arthralgia [Recovered/Resolved]
  - Gait disturbance [Recovered/Resolved]
  - Arthritis [Unknown]

NARRATIVE: CASE EVENT DATE: 201510
